FAERS Safety Report 8620714-7 (Version None)
Quarter: 2012Q3

REPORT INFORMATION
  Report Type: 
  Country: None (occurrence: None)
  Receive Date: 20120824
  Receipt Date: 20120814
  Transmission Date: 20120928
  Serious: Yes (Congenital Anomaly)
  Sender: FDA-Public Use
  Company Number: FR-FRI-1000038120

PATIENT
  Sex: Male
  Weight: 3.27 kg

DRUGS (4)
  1. PRAZEPAM [Suspect]
     Route: 064
  2. ATARAX [Suspect]
     Route: 064
  3. MEPRONIZINE [Suspect]
     Route: 064
  4. ESCITALOPRAM OXALATE [Suspect]
     Route: 064

REACTIONS (2)
  - MATERNAL EXPOSURE DURING PREGNANCY [None]
  - HYPOSPADIAS [None]
